APPROVED DRUG PRODUCT: DOXORUBICIN HYDROCHLORIDE
Active Ingredient: DOXORUBICIN HYDROCHLORIDE
Strength: 20MG/VIAL
Dosage Form/Route: INJECTABLE;INJECTION
Application: A206062 | Product #001
Applicant: HISUN PHARMACEUTICAL HANGZHOU CO LTD
Approved: May 13, 2019 | RLD: No | RS: No | Type: DISCN